FAERS Safety Report 20745186 (Version 1)
Quarter: 2022Q2

REPORT INFORMATION
  Report Type: Spontaneous
  Country: TR (occurrence: TR)
  Receive Date: 20220425
  Receipt Date: 20220425
  Transmission Date: 20220721
  Serious: Yes (Other)
  Sender: FDA-Public Use
  Company Number: TR-NOVARTISPH-NVSC2022TR094510

PATIENT
  Age: 83 Year
  Sex: Male

DRUGS (2)
  1. EXELON [Suspect]
     Active Substance: RIVASTIGMINE TARTRATE
     Indication: Dementia Alzheimer^s type
     Dosage: 1.5 MG
     Route: 065
  2. EXELON [Suspect]
     Active Substance: RIVASTIGMINE TARTRATE
     Indication: Dementia Alzheimer^s type
     Dosage: 1 DOSAGE FORM, QD
     Route: 065

REACTIONS (7)
  - CSF volume decreased [Unknown]
  - Intentional self-injury [Unknown]
  - Decreased activity [Unknown]
  - Anger [Unknown]
  - Aggression [Unknown]
  - Product supply issue [Unknown]
  - Drug ineffective [Unknown]
